FAERS Safety Report 22041541 (Version 1)
Quarter: 2023Q1

REPORT INFORMATION
  Report Type: Spontaneous
  Country: US (occurrence: None)
  Receive Date: 20230226
  Receipt Date: 20230226
  Transmission Date: 20230417
  Serious: Yes (Death)
  Sender: FDA-Public Use
  Company Number: None

PATIENT
  Sex: Female

DRUGS (20)
  1. IMATINIB MESYLATE [Suspect]
     Active Substance: IMATINIB MESYLATE
     Indication: Gastrointestinal stromal tumour
     Dosage: 400MG DAILY ORAL
     Route: 048
     Dates: start: 202211
  2. ALBUTEROL [Concomitant]
     Active Substance: ALBUTEROL
  3. CETIRIZINE [Concomitant]
     Active Substance: CETIRIZINE HYDROCHLORIDE
  4. DULOXETINE [Concomitant]
     Active Substance: DULOXETINE
  5. ELIQUIS [Concomitant]
     Active Substance: APIXABAN
  6. FOLIC ACID [Concomitant]
     Active Substance: FOLIC ACID
  7. HYZAAR [Concomitant]
     Active Substance: HYDROCHLOROTHIAZIDE\LOSARTAN POTASSIUM
  8. LEVOTHYROXINE [Concomitant]
     Active Substance: LEVOTHYROXINE
  9. LUMIGAN [Concomitant]
     Active Substance: BIMATOPROST
  10. LYRICA [Concomitant]
     Active Substance: PREGABALIN
  11. METHOTREXATE [Concomitant]
     Active Substance: METHOTREXATE
  12. METHYLPREDNISOLONE [Concomitant]
     Active Substance: METHYLPREDNISOLONE
  13. METOPROLOL [Concomitant]
     Active Substance: METOPROLOL
  14. MONTELUKAST [Concomitant]
     Active Substance: MONTELUKAST SODIUM
  15. OMEPRAZOLE [Concomitant]
     Active Substance: OMEPRAZOLE
  16. ONDANSETRON [Concomitant]
     Active Substance: ONDANSETRON
  17. ROPINIROLE [Concomitant]
     Active Substance: ROPINIROLE
  18. RESTASIS [Concomitant]
     Active Substance: CYCLOSPORINE
  19. TIMOLOL [Concomitant]
     Active Substance: TIMOLOL
  20. VITAMIN B12 [Concomitant]
     Active Substance: CYANOCOBALAMIN

REACTIONS (1)
  - Death [None]
